FAERS Safety Report 8737795 (Version 2)
Quarter: 2013Q4

REPORT INFORMATION
  Report Type: Spontaneous
  Country: US (occurrence: US)
  Receive Date: 20120822
  Receipt Date: 20131105
  Transmission Date: 20140711
  Serious: Yes (Hospitalization)
  Sender: FDA-Public Use
  Company Number: US-009507513-1207USA011283

PATIENT
  Age: 80 Year
  Sex: Male

DRUGS (5)
  1. ZOCOR [Suspect]
     Dosage: 80 MG, UNK
     Route: 048
  2. TAMSULOSIN HYDROCHLORIDE [Concomitant]
  3. LITHIUM [Concomitant]
  4. EXELON (RIVASTIGMINE TARTRATE) [Concomitant]
  5. PLAVIX [Concomitant]

REACTIONS (6)
  - Renal failure acute [Unknown]
  - Agitation [Unknown]
  - Confusional state [Unknown]
  - Fall [Unknown]
  - Syncope [Unknown]
  - Rhabdomyolysis [Unknown]
